FAERS Safety Report 4384924-X (Version None)
Quarter: 2004Q2

REPORT INFORMATION
  Report Type: 
  Country: None (occurrence: None)
  Receive Date: 20040625
  Receipt Date: 20040520
  Transmission Date: 20050107
  Serious: Yes (Life-Threatening, Hospitalization)
  Sender: FDA-Public Use
  Company Number: IE-ROCHE-368485

PATIENT
  Age: 61 Year
  Sex: Male
  Weight: 130 kg

DRUGS (2)
  1. XENICAL [Suspect]
     Indication: OBESITY
     Route: 048
     Dates: start: 20040214, end: 20040326
  2. CENTYL [Concomitant]

REACTIONS (1)
  - PULMONARY EMBOLISM [None]
